FAERS Safety Report 24202668 (Version 1)
Quarter: 2024Q3

REPORT INFORMATION
  Report Type: Spontaneous
  Country: US (occurrence: US)
  Receive Date: 20240813
  Receipt Date: 20240813
  Transmission Date: 20241017
  Serious: Yes (Death)
  Sender: NOVO NORDISK
  Company Number: US-NOVOPROD-1265970

PATIENT
  Age: 72 Year
  Sex: Male
  Weight: 115.19 kg

DRUGS (2)
  1. NOVOLIN 70/30 [Suspect]
     Active Substance: INSULIN HUMAN
     Indication: Type 2 diabetes mellitus
     Dosage: 25 UNITS IN MORNING, 15UNITS AT NIGHT
     Route: 058
     Dates: start: 202306
  2. NOVOLIN 70/30 [Suspect]
     Active Substance: INSULIN HUMAN
     Dosage: 35 UNITS IN MORNING, 20 UNITS AT NIGHT
     Route: 058
     Dates: start: 202310

REACTIONS (4)
  - Pulmonary embolism [Fatal]
  - Myocardial infarction [Fatal]
  - Weight increased [Unknown]
  - Glycosylated haemoglobin increased [Unknown]

NARRATIVE: CASE EVENT DATE: 20231001
